FAERS Safety Report 18593985 (Version 1)
Quarter: 2020Q4

REPORT INFORMATION
  Report Type: Other
  Country: NL (occurrence: FR)
  Receive Date: 20201209
  Receipt Date: 20201209
  Transmission Date: 20210114
  Serious: Yes (Life-Threatening, Other)
  Sender: FDA-Public Use
  Company Number: FR-ASTELLAS-2020US043286

PATIENT
  Age: 66 Year
  Sex: Male

DRUGS (4)
  1. REGADENOSON [Suspect]
     Active Substance: REGADENOSON
     Indication: SCAN MYOCARDIAL PERFUSION
     Dosage: 400 ?G, SINGLE
     Route: 042
     Dates: start: 20201007, end: 20201007
  2. REGADENOSON [Suspect]
     Active Substance: REGADENOSON
     Indication: SCAN MYOCARDIAL PERFUSION
     Dosage: 400 ?G, SINGLE
     Route: 042
     Dates: start: 20201007, end: 20201007
  3. REGADENOSON [Suspect]
     Active Substance: REGADENOSON
     Indication: SCAN MYOCARDIAL PERFUSION
     Dosage: 400 ?G, SINGLE
     Route: 042
     Dates: start: 20201007, end: 20201007
  4. REGADENOSON [Suspect]
     Active Substance: REGADENOSON
     Indication: SCAN MYOCARDIAL PERFUSION
     Dosage: 400 ?G, SINGLE
     Route: 042
     Dates: start: 20201007, end: 20201007

REACTIONS (3)
  - Respiratory distress [Not Recovered/Not Resolved]
  - Hypertension [Not Recovered/Not Resolved]
  - Seizure [Not Recovered/Not Resolved]

NARRATIVE: CASE EVENT DATE: 20201007
